FAERS Safety Report 9841623 (Version 3)
Quarter: 2014Q1

REPORT INFORMATION
  Report Type: Spontaneous
  Country: US (occurrence: None)
  Receive Date: 20131223
  Receipt Date: 20140228
  Transmission Date: 20141002
  Serious: No
  Sender: FDA-Public Use
  Company Number: 221795LEO

PATIENT
  Age: 58 Year
  Sex: Female

DRUGS (1)
  1. PICATO (0.05%, GEL) [Suspect]
     Indication: ACTINIC KERATOSIS
     Dosage: (1 IN 1 D)
     Dates: start: 20130504, end: 20130505

REACTIONS (5)
  - Wound [None]
  - Application site discharge [None]
  - Application site reaction [None]
  - Application site vesicles [None]
  - Drug ineffective [None]
